FAERS Safety Report 8424924-3 (Version None)
Quarter: 2012Q2

REPORT INFORMATION
  Report Type: 
  Country: None (occurrence: None)
  Receive Date: 20120611
  Receipt Date: 20120610
  Transmission Date: 20120825
  Serious: No
  Sender: FDA-Public Use
  Company Number: US-PFIZER INC-2012138940

PATIENT
  Sex: Female
  Weight: 52.154 kg

DRUGS (5)
  1. HYDROCORTISONE [Suspect]
     Indication: RASH
     Dosage: UNK
     Dates: start: 20120601
  2. CLARITIN [Concomitant]
     Indication: HYPERSENSITIVITY
     Dosage: UNK
  3. VICODIN [Concomitant]
     Dosage: UNK
  4. CHANTIX [Suspect]
     Indication: SMOKING CESSATION THERAPY
     Dosage: 0.5 MG,DAILY
     Dates: start: 20120608
  5. XANAX [Concomitant]
     Indication: ANXIETY
     Dosage: 0.25 MG, DAILY

REACTIONS (2)
  - RASH [None]
  - DRUG INEFFECTIVE [None]
